FAERS Safety Report 6647019-8 (Version None)
Quarter: 2010Q1

REPORT INFORMATION
  Report Type: 
  Country: None (occurrence: None)
  Receive Date: 20100323
  Receipt Date: 20100115
  Transmission Date: 20100710
  Serious: No
  Sender: FDA-Public Use
  Company Number: A0839750A

PATIENT
  Age: 31 Year
  Sex: Male

DRUGS (5)
  1. LAMICTAL CD [Suspect]
     Dosage: 100MG TWICE PER DAY
     Route: 048
     Dates: start: 20100101
  2. NORCO [Concomitant]
  3. ATIVAN [Concomitant]
  4. TOPROL-XL [Concomitant]
  5. ZOLOFT [Concomitant]

REACTIONS (1)
  - HEAT RASH [None]
